FAERS Safety Report 10011965 (Version 1)
Quarter: 2014Q1

REPORT INFORMATION
  Report Type: Spontaneous
  Country: ES (occurrence: ES)
  Receive Date: 20140314
  Receipt Date: 20140314
  Transmission Date: 20141002
  Serious: Yes (Other)
  Sender: FDA-Public Use
  Company Number: ES-009507513-1403ESP005548

PATIENT
  Sex: 0

DRUGS (3)
  1. RIBAVIRIN [Suspect]
     Indication: HEPATITIS C
     Dosage: 15 MG/KG, UNK
     Route: 048
  2. PEGINTERFERON ALFA-2B [Suspect]
     Indication: HEPATITIS C
     Dosage: 180 MICROGRAM, QW
  3. TELAPREVIR [Suspect]
     Indication: HEPATITIS C
     Dosage: 1125 MG BID OR 750 MG TID

REACTIONS (4)
  - Pancytopenia [Unknown]
  - Major depression [Unknown]
  - Rash [Unknown]
  - Drug intolerance [Unknown]
